FAERS Safety Report 8248533-4 (Version None)
Quarter: 2012Q1

REPORT INFORMATION
  Report Type: 
  Country: None (occurrence: None)
  Receive Date: 20120330
  Receipt Date: 20120307
  Transmission Date: 20120608
  Serious: Yes (Death, Other)
  Sender: FDA-Public Use
  Company Number: JP-BAXTER-2012BH007030

PATIENT
  Sex: Male

DRUGS (27)
  1. ALENDRONATE SODIUM [Concomitant]
     Indication: PROPHYLAXIS
     Route: 048
     Dates: end: 20101231
  2. AMLODIPINE [Concomitant]
     Route: 048
     Dates: end: 20101231
  3. METHYLPREDNISOLONE SODIUM SUCCINATE [Concomitant]
     Indication: IDIOPATHIC PULMONARY FIBROSIS
     Route: 065
     Dates: start: 20101229, end: 20101231
  4. FENTANYL [Concomitant]
     Route: 065
     Dates: start: 20101231, end: 20110125
  5. PIRFENIDONE [Suspect]
     Route: 048
     Dates: start: 20090624, end: 20090707
  6. PIRFENIDONE [Suspect]
     Route: 048
     Dates: start: 20090708, end: 20101230
  7. NEORAL [Concomitant]
     Indication: IDIOPATHIC PULMONARY FIBROSIS
     Route: 048
     Dates: end: 20090609
  8. DAIPHEN [Concomitant]
     Indication: PROPHYLAXIS
     Route: 048
  9. CYCLOPHOSPHAMIDE [Suspect]
     Indication: IDIOPATHIC PULMONARY FIBROSIS
     Route: 042
     Dates: start: 20110121, end: 20110121
  10. PIRFENIDONE [Suspect]
     Indication: IDIOPATHIC PULMONARY FIBROSIS
     Route: 048
     Dates: start: 20090610, end: 20090623
  11. SANDIMMUNE [Suspect]
     Indication: IDIOPATHIC PULMONARY FIBROSIS
     Route: 065
     Dates: start: 20101231, end: 20110125
  12. PREDNISOLONE [Concomitant]
     Indication: IDIOPATHIC PULMONARY FIBROSIS
     Route: 048
     Dates: end: 20090609
  13. BROTIZOLAM [Concomitant]
     Indication: INSOMNIA
     Route: 048
     Dates: start: 20090616, end: 20090713
  14. WARFARIN SODIUM [Concomitant]
     Indication: ATRIAL FLUTTER
     Route: 048
     Dates: start: 20091205
  15. DIPRIVAN [Concomitant]
     Route: 065
     Dates: start: 20101231, end: 20110124
  16. CYCLOPHOSPHAMIDE [Suspect]
     Route: 042
     Dates: start: 20110105, end: 20110105
  17. PIRFENIDONE [Suspect]
     Route: 048
     Dates: start: 20101231, end: 20110124
  18. BETAMETHASONE [Suspect]
     Indication: IDIOPATHIC PULMONARY FIBROSIS
     Route: 065
     Dates: start: 20110101, end: 20110125
  19. VALSARTAN [Concomitant]
     Route: 048
     Dates: end: 20101231
  20. ELASPOL [Concomitant]
     Indication: IDIOPATHIC PULMONARY FIBROSIS
     Route: 065
     Dates: start: 20101231, end: 20110112
  21. PREDNISOLONE [Concomitant]
     Route: 048
     Dates: start: 20100112, end: 20101228
  22. NEORAL [Concomitant]
     Route: 048
     Dates: start: 20101229, end: 20101230
  23. THEOLONG [Concomitant]
     Indication: IDIOPATHIC PULMONARY FIBROSIS
     Route: 048
     Dates: end: 20101231
  24. OMEPRAZOLE [Concomitant]
     Route: 048
     Dates: start: 20110101, end: 20110125
  25. MIDAZOLAM [Concomitant]
     Route: 065
     Dates: start: 20101231, end: 20110124
  26. INOVAN [Concomitant]
     Route: 065
     Dates: start: 20101231, end: 20110124
  27. NOREPINEPHRINE BITARTRATE [Concomitant]
     Route: 065
     Dates: start: 20101231, end: 20110124

REACTIONS (5)
  - BRONCHOPULMONARY ASPERGILLOSIS [None]
  - ATRIAL FLUTTER [None]
  - INSOMNIA [None]
  - BLOOD LACTATE DEHYDROGENASE INCREASED [None]
  - GAMMA-GLUTAMYLTRANSFERASE INCREASED [None]
